FAERS Safety Report 18519715 (Version 1)
Quarter: 2020Q4

REPORT INFORMATION
  Report Type: Other
  Country: TR (occurrence: TR)
  Receive Date: 20201118
  Receipt Date: 20201118
  Transmission Date: 20210114
  Serious: Yes (Hospitalization)
  Sender: FDA-Public Use
  Company Number: TR-SANTOS BIOTECH INDUSTRIES, INC.-2096074

PATIENT
  Age: 4 Year
  Sex: Male

DRUGS (1)
  1. ARIPIPRAZOLE. [Suspect]
     Active Substance: ARIPIPRAZOLE

REACTIONS (4)
  - Tic [None]
  - Decreased eye contact [None]
  - Psychomotor hyperactivity [None]
  - Agitation [None]
